FAERS Safety Report 8849988 (Version 2)
Quarter: 2013Q1

REPORT INFORMATION
  Report Type: Spontaneous
  Country: US (occurrence: US)
  Receive Date: 20121019
  Receipt Date: 20121101
  Transmission Date: 20140127
  Serious: Yes (Hospitalization)
  Sender: FDA-Public Use
  Company Number: US-TARO-2012P1061150

PATIENT
  Age: 85 Year
  Sex: Female

DRUGS (8)
  1. WARFARIN SODIUM TABLETS USP 2.5MG [Suspect]
  2. CEFTAROLINE FOSAMIL [Suspect]
     Indication: CELLULITIS
     Route: 042
  3. CARVEDIOL [Concomitant]
  4. SIMVASTATIN [Concomitant]
  5. ASPIRIN [Concomitant]
  6. ANASTRAZOLE [Concomitant]
  7. OMEPRAZOLE [Concomitant]
  8. VENLAFAXINE [Concomitant]

REACTIONS (2)
  - Drug interaction [Recovered/Resolved]
  - Haemarthrosis [Recovered/Resolved]
